FAERS Safety Report 20916891 (Version 1)
Quarter: 2022Q2

REPORT INFORMATION
  Report Type: Spontaneous
  Country: FR (occurrence: FR)
  Receive Date: 20220605
  Receipt Date: 20220605
  Transmission Date: 20220721
  Serious: Yes (Hospitalization, Other)
  Sender: FDA-Public Use
  Company Number: FR-002147023-NVSC2022FR126278

PATIENT
  Age: 57 Year
  Sex: Female

DRUGS (2)
  1. ERENUMAB [Suspect]
     Active Substance: ERENUMAB
     Indication: Migraine
     Dosage: 70 MG, QMO
     Route: 065
  2. ERENUMAB [Suspect]
     Active Substance: ERENUMAB
     Dosage: 140 MG, QMO
     Route: 065

REACTIONS (2)
  - Myocardial infarction [Unknown]
  - Thrombosis [Unknown]
